FAERS Safety Report 5153201-1 (Version None)
Quarter: 2006Q4

REPORT INFORMATION
  Report Type: 
  Country: None (occurrence: None)
  Receive Date: 20061114
  Receipt Date: 20061031
  Transmission Date: 20070319
  Serious: Yes (Disabling)
  Sender: FDA-Public Use
  Company Number: GXKR2006DK06942

PATIENT
  Age: 78 Year
  Sex: Male
  Weight: 60 kg

DRUGS (1)
  1. KETOPROFEN [Suspect]
     Dosage: ORAL
     Route: 048

REACTIONS (1)
  - SWOLLEN TONGUE [None]
